FAERS Safety Report 7548363-2 (Version None)
Quarter: 2011Q2

REPORT INFORMATION
  Report Type: 
  Country: None (occurrence: None)
  Receive Date: 20110615
  Receipt Date: 20110601
  Transmission Date: 20111010
  Serious: Yes (Hospitalization, Other)
  Sender: FDA-Public Use
  Company Number: US-BAYER-2011-004361

PATIENT
  Age: 77 Year
  Sex: Female
  Weight: 51.701 kg

DRUGS (25)
  1. TYLENOL W/ CODEINE NO. 3 [Concomitant]
     Indication: GOUT
     Dosage: ONE TABLET
     Dates: start: 20051001, end: 20090101
  2. POTASSIUM CHLORIDE [Concomitant]
     Indication: HYPOKALAEMIA
     Dosage: 20 MEQ, QD
     Route: 048
     Dates: start: 20100927
  3. TYLENOL W/ CODEINE NO. 3 [Concomitant]
     Indication: ARTHRALGIA
  4. SORAFENIB (RAF KINASE INHIBITOR) [Suspect]
     Indication: HEPATIC NEOPLASM MALIGNANT
     Dosage: 200 MG, BID
     Route: 048
     Dates: start: 20100617
  5. ALLEGRA [Concomitant]
     Indication: SINUS DISORDER
     Dosage: 60-120 MG,  PRN
     Route: 048
     Dates: start: 20010101, end: 20100811
  6. COLCHICINE [Concomitant]
     Indication: GOUT
     Dosage: 1.2 MG, QD
     Route: 048
     Dates: start: 20040602
  7. GLIPIZIDE [Concomitant]
     Indication: DIABETES MELLITUS
     Dosage: 2.5 MG, QD
     Route: 048
     Dates: start: 19991101
  8. PERIDEX [Concomitant]
     Indication: TONGUE GEOGRAPHIC
     Dosage: 15 ML, QD
     Route: 050
     Dates: start: 20100622, end: 20100801
  9. MULTIVITAMIN PREPARATION + MINERAL SUPPLEMENT [Concomitant]
     Indication: MEDICAL DIET
     Dosage: 1 DF, QD
     Route: 048
     Dates: start: 20100811
  10. LEVEMIR [Concomitant]
     Indication: DIABETES MELLITUS
     Dosage: DAILY DOSE 65 U
     Dates: start: 20071011, end: 20101223
  11. LEVEMIR [Concomitant]
     Dosage: 10 U, QD
     Route: 058
     Dates: start: 20101223
  12. IMODIUM [Concomitant]
     Indication: DIARRHOEA
     Dosage: 2 MG, PRN
     Route: 048
     Dates: start: 20100730
  13. VITAMIN D [Concomitant]
     Indication: OSTEOPENIA
     Dosage: 50000 U, QD
     Route: 048
     Dates: start: 20100811
  14. ERLOTINIB HYDROCHLORIDE [Suspect]
     Indication: HEPATIC NEOPLASM MALIGNANT
     Dosage: UNK
     Route: 048
     Dates: start: 20100617
  15. ALBUTEROL SULFATE AUTOHALER [Concomitant]
     Indication: ASTHMA
     Dosage: UNK
     Route: 055
     Dates: start: 20020101
  16. NORVASC [Concomitant]
     Indication: HYPERTENSION
     Dosage: 10 MG, QD
     Route: 048
     Dates: start: 20011001, end: 20100930
  17. NORVASC [Concomitant]
     Dosage: 20 MG, QD
     Route: 048
     Dates: start: 20101001
  18. POTASSIUM CHLORIDE [Concomitant]
  19. ALBUTEROL SULFATE AUTOHALER [Concomitant]
     Dosage: 180 MCG, PRN
     Dates: start: 20020101
  20. COZAAR [Concomitant]
     Indication: HYPERTENSION
     Dosage: UNK
     Route: 048
     Dates: start: 20010601
  21. BALANCID [CALCIUM CARBONATE] [Concomitant]
     Indication: OSTEOPENIA
     Dosage: DAILY DOSE 600 MG
     Dates: start: 20100811
  22. ACULAR LS [Concomitant]
     Indication: DRY EYE
     Dosage: 2 DROPS, QD
     Route: 047
     Dates: start: 20080801
  23. ALBUTEROL [Concomitant]
     Indication: ASTHMA
     Dosage: UNK UNK, PRN
     Route: 055
     Dates: start: 20020101
  24. AMBIEN [Concomitant]
     Indication: INSOMNIA
     Dosage: 0.5 DF, QD
     Route: 048
     Dates: start: 20041007
  25. KETOROLAC TROMETHAMINE [Concomitant]
     Indication: DRY EYE
     Dosage: 2 DROPS
     Dates: start: 20080801

REACTIONS (2)
  - PNEUMONIA [None]
  - ENCEPHALOPATHY [None]
